FAERS Safety Report 19267116 (Version 1)
Quarter: 2021Q2

REPORT INFORMATION
  Report Type: Spontaneous
  Country: IT (occurrence: IT)
  Receive Date: 20210518
  Receipt Date: 20210518
  Transmission Date: 20210717
  Serious: No
  Sender: FDA-Public Use
  Company Number: IT-ALKEM LABORATORIES LIMITED-IT-ALKEM-2020-03642

PATIENT
  Age: 36 Year
  Sex: Female

DRUGS (6)
  1. ASPIRIN. [Suspect]
     Active Substance: ASPIRIN
     Indication: MYOCARDIAL INFARCTION
     Dosage: 100 MILLIGRAM
     Route: 065
  2. TELMISARTAN. [Suspect]
     Active Substance: TELMISARTAN
     Indication: MYOCARDIAL INFARCTION
     Dosage: UNK
     Route: 065
  3. PANTOPRAZOLE [Suspect]
     Active Substance: PANTOPRAZOLE
     Indication: MYOCARDIAL INFARCTION
     Dosage: UNK
     Route: 065
  4. METOPROLOL. [Suspect]
     Active Substance: METOPROLOL
     Indication: MYOCARDIAL INFARCTION
     Dosage: UNK
     Route: 065
  5. ROSUVASTATIN. [Suspect]
     Active Substance: ROSUVASTATIN
     Indication: MYOCARDIAL INFARCTION
     Dosage: UNK
     Route: 065
  6. CLOPIDOGREL [Suspect]
     Active Substance: CLOPIDOGREL BISULFATE
     Indication: MYOCARDIAL INFARCTION
     Dosage: 75 MILLIGRAM
     Route: 065

REACTIONS (1)
  - Exposure during pregnancy [Unknown]
